FAERS Safety Report 4818427-2 (Version None)
Quarter: 2005Q4

REPORT INFORMATION
  Report Type: 
  Country: None (occurrence: None)
  Receive Date: 20051027
  Receipt Date: 20051013
  Transmission Date: 20060501
  Serious: No
  Sender: FDA-Public Use
  Company Number: HQWYE034114OCT05

PATIENT
  Age: 19 Year
  Sex: Male

DRUGS (1)
  1. REFACTO [Suspect]
     Indication: FACTOR VIII DEFICIENCY
     Dosage: 100 UNITS /KG/DOSE (200% CORRECTION) ON DEMAND, INTRAVENOUS
     Route: 042
     Dates: start: 20001201, end: 20040101

REACTIONS (7)
  - ANTI FACTOR VIII ANTIBODY POSITIVE [None]
  - ARTHRALGIA [None]
  - ARTHROPATHY [None]
  - COAGULATION FACTOR VIII LEVEL DECREASED [None]
  - DRUG EFFECT DECREASED [None]
  - HAEMARTHROSIS [None]
  - HAEMORRHAGE [None]
